FAERS Safety Report 5569817-4 (Version None)
Quarter: 2007Q4

REPORT INFORMATION
  Report Type: 
  Country: None (occurrence: None)
  Receive Date: 20071217
  Receipt Date: 20071206
  Transmission Date: 20080405
  Serious: Yes (Hospitalization, Other)
  Sender: FDA-Public Use
  Company Number: 2007SP021047

PATIENT
  Age: 60 Year
  Sex: Female
  Weight: 63.5036 kg

DRUGS (26)
  1. PEG-INTRON [Suspect]
     Indication: HEPATITIS C
     Dosage: 30 MCG;QW;SC
     Route: 058
     Dates: start: 20070918, end: 20071013
  2. REBETOL [Suspect]
     Indication: HEPATITIS C
     Dosage: 600 MG;QD;PO
     Route: 048
     Dates: start: 20070918, end: 20071013
  3. LASIX [Concomitant]
  4. ALDACTONE [Concomitant]
  5. QUALAQUIN [Concomitant]
  6. ACIPHEX [Concomitant]
  7. CLONIPINE [Concomitant]
  8. MILK THISTLE [Concomitant]
  9. PROCRIT [Suspect]
     Indication: ANAEMIA
     Dosage: 4000 IU;QW;SC
     Route: 058
     Dates: start: 20071009, end: 20071013
  10. VALIUM [Concomitant]
  11. LACTULOSE [Concomitant]
  12. CELLCEPT [Concomitant]
  13. TACROLIMUS [Concomitant]
  14. PREDNISONE TAB [Concomitant]
  15. ACYCLOVIR [Concomitant]
  16. NORVASC [Concomitant]
  17. OSCAL [Concomitant]
  18. COLACE [Concomitant]
  19. INSULIN [Concomitant]
  20. MAGNESIUM OXIDE [Concomitant]
  21. METOPROLOL [Concomitant]
  22. MULTI-VITAMIN [Concomitant]
  23. NYSTATIN [Concomitant]
  24. PROGRAF [Concomitant]
  25. ASPIRIN [Concomitant]
  26. ACTIGALL [Concomitant]

REACTIONS (21)
  - ABDOMINAL DISCOMFORT [None]
  - ABDOMINAL PAIN [None]
  - ANAEMIA [None]
  - ASCITES [None]
  - BACTERIAL INFECTION [None]
  - BLOOD CULTURE POSITIVE [None]
  - CHILLS [None]
  - CITROBACTER INFECTION [None]
  - DECREASED APPETITE [None]
  - DIARRHOEA [None]
  - ENTEROCOCCAL INFECTION [None]
  - FATIGUE [None]
  - HAEMATOCRIT ABNORMAL [None]
  - HAEMOGLOBIN ABNORMAL [None]
  - HEADACHE [None]
  - NEUTROPHIL PERCENTAGE DECREASED [None]
  - PERITONITIS BACTERIAL [None]
  - PLEURAL EFFUSION [None]
  - PYREXIA [None]
  - VOMITING [None]
  - WHITE BLOOD CELL COUNT DECREASED [None]
